FAERS Safety Report 4633827-1 (Version None)
Quarter: 2005Q2

REPORT INFORMATION
  Report Type: 
  Country: None (occurrence: None)
  Receive Date: 20050413
  Receipt Date: 20050317
  Transmission Date: 20051028
  Serious: Yes (Death)
  Sender: FDA-Public Use
  Company Number: 200510841JP

PATIENT
  Age: 80 Year
  Sex: Male
  Weight: 37.8 kg

DRUGS (2)
  1. TAXOTERE [Suspect]
     Indication: OESOPHAGEAL CARCINOMA
     Route: 041
     Dates: start: 20050221, end: 20050221
  2. AQUPLA [Suspect]
     Indication: OESOPHAGEAL CARCINOMA
     Route: 041
     Dates: start: 20050221, end: 20050221

REACTIONS (4)
  - ANAPHYLACTIC SHOCK [None]
  - HAEMOGLOBIN DECREASED [None]
  - HEART RATE DECREASED [None]
  - RED BLOOD CELL COUNT DECREASED [None]
